FAERS Safety Report 9190274 (Version 1)
Quarter: 2013Q1

REPORT INFORMATION
  Report Type: Spontaneous
  Country: US (occurrence: US)
  Receive Date: 20130326
  Receipt Date: 20130326
  Transmission Date: 20140127
  Serious: Yes (Other)
  Sender: FDA-Public Use
  Company Number: US-SANOFI-AVENTIS-2013SA029972

PATIENT
  Age: 77 Year
  Sex: Female

DRUGS (2)
  1. ALLEGRA [Suspect]
     Indication: HYPERSENSITIVITY
     Route: 048
  2. THYROID THERAPY [Concomitant]

REACTIONS (3)
  - Prosthesis user [Unknown]
  - Fall [Unknown]
  - Concussion [Unknown]
